FAERS Safety Report 7999753-5 (Version None)
Quarter: 2011Q4

REPORT INFORMATION
  Report Type: 
  Country: None (occurrence: None)
  Receive Date: 20111221
  Receipt Date: 20111213
  Transmission Date: 20120403
  Serious: Yes (Other)
  Sender: FDA-Public Use
  Company Number: US-ASTRAZENECA-2006UW18071

PATIENT
  Age: 18777 Day
  Sex: Male

DRUGS (37)
  1. VARDENAFIL HCL [Concomitant]
     Dates: start: 20070507
  2. SEROQUEL [Suspect]
     Indication: NIGHTMARE
     Dosage: TAKE ONE HALF TABLET AT BEDTIME
     Route: 048
     Dates: start: 20040505
  3. SILDENAFIL CITRATE [Concomitant]
     Indication: ERECTILE DYSFUNCTION
     Dosage: TAKE ONE HALF TABLET BY MOUTH ONE HALF HOUR BEFORE ACTIVITY
     Route: 048
     Dates: start: 20040812
  4. INH [Concomitant]
     Indication: TUBERCULIN TEST POSITIVE
  5. HYDROCHLOROTHIAZIDE [Concomitant]
     Indication: BLOOD PRESSURE ABNORMAL
     Route: 048
     Dates: start: 20040505
  6. CILOSTAZOL [Concomitant]
     Dosage: ON EMPTY STOMACH
     Route: 048
     Dates: start: 20040812
  7. SEROQUEL [Suspect]
     Indication: POST-TRAUMATIC STRESS DISORDER
     Dosage: TAKE ONE HALF TABLET AT BEDTIME
     Route: 048
     Dates: start: 20040505
  8. SEROQUEL [Suspect]
     Indication: INSOMNIA
     Dosage: TAKE ONE HALF TABLET AT BEDTIME
     Route: 048
     Dates: start: 20040505
  9. SEROQUEL [Suspect]
     Route: 048
     Dates: start: 20040801
  10. LOSARTAN POTASSIUM [Concomitant]
     Dates: start: 20070507
  11. HYDROCHLOROTHIAZIDE [Concomitant]
     Dosage: 25 QD
     Dates: start: 20040607
  12. TRAZODONE HCL [Concomitant]
     Dosage: 50 MG AT BED TIME AS NEEDED
     Route: 048
     Dates: start: 20031001
  13. LISINOPRIL [Concomitant]
     Dosage: AT NIGHT
     Dates: start: 20021009
  14. ASPIRIN [Concomitant]
     Indication: INFLAMMATION
     Route: 048
     Dates: start: 20040505
  15. SEROQUEL [Suspect]
     Route: 048
     Dates: start: 20040801
  16. METOPROLOL TARTRATE [Concomitant]
     Route: 048
     Dates: start: 20030603
  17. TRAZODONE HCL [Concomitant]
     Indication: INSOMNIA
     Dosage: 50- 100 QHS
     Dates: start: 20040607
  18. ATENOLOL [Concomitant]
     Dosage: IN AM
     Dates: start: 20021009
  19. RANITIDINE HCL [Concomitant]
     Indication: GASTRIC PH DECREASED
     Route: 048
     Dates: start: 20040413
  20. OMEPRAZOLE [Concomitant]
     Dosage: 20 QD
     Dates: start: 20040607
  21. OMEPRAZOLE [Concomitant]
     Dates: start: 20070507
  22. METOPROLOL TARTRATE [Concomitant]
     Dosage: 50 BID
     Dates: start: 20040607
  23. SIMVASTATIN [Concomitant]
     Dosage: 10 QHS
     Dates: start: 20040607
  24. HYDROCHLOROTHIAZIDE [Concomitant]
     Indication: FLUID RETENTION
     Route: 048
     Dates: start: 20040505
  25. ASPIRIN [Concomitant]
     Indication: CEREBROVASCULAR ACCIDENT PROPHYLAXIS
     Route: 048
     Dates: start: 20040505
  26. SEROQUEL [Suspect]
     Route: 048
     Dates: start: 20040801
  27. RISPERDAL [Suspect]
  28. LOSARTAN POTASSIUM [Concomitant]
     Indication: BLOOD PRESSURE ABNORMAL
     Route: 048
     Dates: start: 20040505
  29. CARVEDILOL [Concomitant]
     Dates: start: 20070507
  30. ASPIRIN [Concomitant]
     Indication: SWELLING
     Route: 048
     Dates: start: 20040505
  31. ZOLPIDEM TARTRATE [Concomitant]
     Indication: SLEEP DISORDER
     Dosage: 10 MG ONE HALF TABLET AT BED TIME - TAKE NO MORE THAN 20 DAYS
     Route: 048
     Dates: start: 20040625
  32. LOSARTAN POTASSIUM [Concomitant]
     Dosage: 50 QD
     Dates: start: 20040607
  33. SIMVASTATIN [Concomitant]
     Dates: start: 20070507
  34. HYDROCHLOROTHIAZIDE [Concomitant]
     Dosage: 25 QD
     Dates: start: 20040607
  35. OXYBUTYNIN CHLORIDE [Concomitant]
     Dates: start: 20070507
  36. ASPIRIN [Concomitant]
     Indication: ISCHAEMIC HEART DISEASE PROPHYLAXIS
     Route: 048
     Dates: start: 20040505
  37. ASPIRIN [Concomitant]
     Indication: PAIN
     Route: 048
     Dates: start: 20040505

REACTIONS (10)
  - MYOCARDIAL ISCHAEMIA [None]
  - TYPE 2 DIABETES MELLITUS [None]
  - NEUROPATHY PERIPHERAL [None]
  - HYPOAESTHESIA [None]
  - CARDIAC FAILURE CONGESTIVE [None]
  - ANGINA PECTORIS [None]
  - DIABETIC COMPLICATION [None]
  - TYPE 1 DIABETES MELLITUS [None]
  - ERECTILE DYSFUNCTION [None]
  - VISION BLURRED [None]
